FAERS Safety Report 4303060-1 (Version None)
Quarter: 2004Q1

REPORT INFORMATION
  Report Type: 
  Country: None (occurrence: None)
  Receive Date: 20040224
  Receipt Date: 20040212
  Transmission Date: 20041129
  Serious: Yes (Hospitalization)
  Sender: FDA-Public Use
  Company Number: GB-BRISTOL-MYERS SQUIBB COMPANY-12503793

PATIENT
  Age: 69 Year
  Sex: Female

DRUGS (9)
  1. PRAVASTATIN SODIUM [Suspect]
     Indication: HYPERCHOLESTEROLAEMIA
     Route: 048
     Dates: start: 20031114, end: 20031214
  2. BUMETANIDE [Concomitant]
     Indication: CARDIAC FAILURE
     Route: 048
  3. CARVEDILOL [Concomitant]
     Indication: CARDIAC FAILURE
     Route: 048
  4. CLOPIDOGREL BISULFATE [Concomitant]
     Indication: ATRIAL FIBRILLATION
     Route: 048
  5. CANDESARTAN CILEXETIL [Concomitant]
     Indication: HYPERTENSION
     Route: 048
  6. CALCICHEW [Concomitant]
     Route: 048
  7. PARACETAMOL BIOGARAN [Concomitant]
     Indication: PAIN
     Route: 048
  8. WARFARIN SODIUM [Concomitant]
     Indication: ATRIAL FIBRILLATION
     Dosage: 4-5 MG DAILY
     Route: 048
  9. ROSUVASTATIN CALCIUM [Concomitant]
     Route: 048
     Dates: start: 20031107

REACTIONS (1)
  - MYOSITIS [None]
